FAERS Safety Report 9470662 (Version 1)
Quarter: 2013Q3

REPORT INFORMATION
  Report Type: Spontaneous
  Country: US (occurrence: None)
  Receive Date: 20130820
  Receipt Date: 20130820
  Transmission Date: 20140515
  Serious: Yes (Disabling, Other)
  Sender: FDA-Public Use
  Company Number: None

PATIENT
  Age: 11 Year
  Sex: Male
  Weight: 34.02 kg

DRUGS (6)
  1. EFFEXOR [Suspect]
     Indication: DEPRESSION
     Dosage: 1 PILL QID BY MOUTH P.O.
     Route: 048
     Dates: start: 19961110, end: 19961125
  2. COLACE [Concomitant]
  3. ZANTAC [Concomitant]
  4. PRILOSEX [Concomitant]
  5. VENTOLIN [Concomitant]
  6. QVAR [Concomitant]

REACTIONS (2)
  - Dysuria [None]
  - Urinary incontinence [None]
